FAERS Safety Report 8885176 (Version 1)
Quarter: 2012Q4

REPORT INFORMATION
  Report Type: Report from Study
  Country: US (occurrence: US)
  Receive Date: 20121101
  Receipt Date: 20121101
  Transmission Date: 20130627
  Serious: Yes (Hospitalization)
  Sender: FDA-Public Use
  Company Number: US-ABBOTT-12P-163-0999579-00

PATIENT
  Sex: Female

DRUGS (9)
  1. HUMIRA [Suspect]
     Indication: RHEUMATOID ARTHRITIS
  2. METHOTREXATE [Concomitant]
     Indication: RHEUMATOID ARTHRITIS
  3. FOLIC ACID [Concomitant]
     Indication: VITAMIN SUPPLEMENTATION
  4. PLAQUENIL [Concomitant]
     Indication: RHEUMATOID ARTHRITIS
  5. NUPRIN [Concomitant]
     Indication: PAIN
  6. PREDNISONE [Concomitant]
  7. VITAMIN D [Concomitant]
     Indication: VITAMIN SUPPLEMENTATION
  8. VENTOLIN [Concomitant]
     Indication: ASTHMA
  9. AMBIEN [Concomitant]
     Indication: INSOMNIA

REACTIONS (4)
  - Pneumothorax [Recovered/Resolved]
  - Pericarditis [Recovered/Resolved]
  - Rheumatoid arthritis [Recovered/Resolved]
  - Drug dose omission [Not Recovered/Not Resolved]
